FAERS Safety Report 8015712-0 (Version None)
Quarter: 2011Q4

REPORT INFORMATION
  Report Type: 
  Country: None (occurrence: None)
  Receive Date: 20111230
  Receipt Date: 20111220
  Transmission Date: 20120403
  Serious: Yes (Hospitalization)
  Sender: FDA-Public Use
  Company Number: PHHY2011IT96051

PATIENT
  Sex: Female

DRUGS (24)
  1. OXCARBAZEPINE [Suspect]
     Dosage: 600 MG, (1.5 TABLET DAILY)
     Route: 048
     Dates: start: 20111007, end: 20111010
  2. PHENYTOIN SODIUM [Suspect]
     Dosage: 150 MG, TID
     Route: 048
     Dates: start: 20111005, end: 20111019
  3. VALIUM [Concomitant]
     Dosage: 20 DRP, UNK
     Route: 048
  4. DEXAMETHASONE SODIUM PHOSPHATE [Concomitant]
     Dosage: 0.5 DF
     Route: 030
  5. METHYLPREDNISOLONE [Concomitant]
     Dosage: 40 MG, BID
  6. PHENYTOIN SODIUM [Suspect]
     Dosage: 400 MG,DAILY
     Route: 048
     Dates: start: 20111020, end: 20111024
  7. HALOPERIDOL [Suspect]
     Dosage: 10 DRP, UNK
     Route: 048
     Dates: start: 20110929, end: 20111001
  8. OXCARBAZEPINE [Suspect]
     Dosage: 150 MG, BID
     Route: 048
     Dates: start: 20111020, end: 20111024
  9. HALOPERIDOL [Suspect]
     Dosage: 5 DRP, TID
     Dates: start: 20111020, end: 20111024
  10. OXCARBAZEPINE [Suspect]
     Dosage: 90 MG / DAY
     Route: 048
  11. OXCARBAZEPINE [Suspect]
     Dosage: 600 MG, BID
     Route: 048
     Dates: start: 20110929, end: 20111001
  12. PHENYTOIN SODIUM [Suspect]
     Indication: EPILEPSY
     Dosage: 100 MG, BID
     Route: 048
     Dates: start: 20110929, end: 20111001
  13. VALIUM [Concomitant]
     Dosage: 30 DRP, UNK
     Route: 048
     Dates: start: 20111024, end: 20111026
  14. OXCARBAZEPINE [Suspect]
     Dosage: 300 MG, BID
     Route: 048
     Dates: start: 20111011, end: 20111017
  15. OXCARBAZEPINE [Suspect]
     Dosage: 300 MG, (1.5 TABLET DAILY)
     Route: 048
     Dates: start: 20111018, end: 20111020
  16. OXCARBAZEPINE [Suspect]
     Indication: EPILEPSY
     Route: 048
  17. OXCARBAZEPINE [Suspect]
     Dosage: 300 MG, TID
     Route: 048
  18. VALIUM [Concomitant]
     Dosage: 50 DRP, DAILY
     Route: 048
     Dates: start: 20111007, end: 20111011
  19. VALIUM [Concomitant]
     Dosage: 5 DRP, BID
     Route: 048
     Dates: start: 20101013, end: 20111015
  20. VALIUM [Concomitant]
     Dosage: 10 DRP, UNK
     Route: 048
     Dates: start: 20111020, end: 20111023
  21. DEXAMETHASONE SODIUM PHOSPHATE [Concomitant]
     Dosage: 1 DF
     Route: 030
  22. HALOPERIDOL [Suspect]
     Dosage: 20 DRP, UNK
     Route: 048
     Dates: start: 20111007, end: 20111010
  23. METHYLPREDNISOLONE [Concomitant]
     Dosage: 1 G / DAY
  24. HALOPERIDOL [Suspect]
     Dosage: 15 DRP, TID
     Route: 050
     Dates: start: 20111015, end: 20111018

REACTIONS (21)
  - DERMATITIS [None]
  - STEVENS-JOHNSON SYNDROME [None]
  - ALANINE AMINOTRANSFERASE INCREASED [None]
  - ACUTE PSYCHOSIS [None]
  - NYSTAGMUS [None]
  - MOOD ALTERED [None]
  - SKIN BURNING SENSATION [None]
  - SKIN EXFOLIATION [None]
  - PYREXIA [None]
  - ACUTE DISSEMINATED ENCEPHALOMYELITIS [None]
  - IMPULSIVE BEHAVIOUR [None]
  - STAPHYLOCOCCAL SEPSIS [None]
  - CONJUNCTIVITIS [None]
  - ATAXIA [None]
  - GAMMA-GLUTAMYLTRANSFERASE INCREASED [None]
  - RASH ERYTHEMATOUS [None]
  - PURULENT DISCHARGE [None]
  - ABNORMAL BEHAVIOUR [None]
  - EPILEPSY [None]
  - ANGIOEDEMA [None]
  - RASH [None]
